FAERS Safety Report 11898252 (Version 1)
Quarter: 2016Q1

REPORT INFORMATION
  Report Type: Spontaneous
  Country: GB (occurrence: GB)
  Receive Date: 20160108
  Receipt Date: 20160108
  Transmission Date: 20160526
  Serious: Yes (Other)
  Sender: FDA-Public Use
  Company Number: GB-ACTAVIS-2015-28978

PATIENT
  Age: 28 Year
  Sex: Female
  Weight: 74.38 kg

DRUGS (2)
  1. ARNICA                             /01006901/ [Concomitant]
     Indication: PRODUCT USED FOR UNKNOWN INDICATION
     Dosage: UNK
     Route: 065
  2. COCODAMOL [Suspect]
     Active Substance: ACETAMINOPHEN\CODEINE PHOSPHATE
     Indication: CHOLECYSTECTOMY
     Dosage: UNK
     Route: 048
     Dates: start: 20151130, end: 20151204

REACTIONS (3)
  - Mouth ulceration [Recovered/Resolved]
  - Erythema [Recovered/Resolved]
  - Oral pain [Recovered/Resolved]

NARRATIVE: CASE EVENT DATE: 20151203
